FAERS Safety Report 6477893-X (Version None)
Quarter: 2009Q4

REPORT INFORMATION
  Report Type: 
  Country: None (occurrence: None)
  Receive Date: 20091203
  Receipt Date: 20091203
  Transmission Date: 20100525
  Serious: Yes (Other)
  Sender: FDA-Public Use
  Company Number: None

PATIENT
  Age: 39 Year
  Sex: Female
  Weight: 90.7194 kg

DRUGS (2)
  1. PRISTIQ [Suspect]
     Indication: PANIC ATTACK
     Dosage: 50 MG DAILY PO
     Route: 048
     Dates: start: 20090829, end: 20091020
  2. PRISTIQ [Suspect]
     Indication: PANIC ATTACK
     Dosage: 100MG DAILY PO
     Route: 048
     Dates: start: 20091019, end: 20091118

REACTIONS (7)
  - ANXIETY [None]
  - CRYING [None]
  - DRUG INEFFECTIVE [None]
  - FEELING ABNORMAL [None]
  - IMPAIRED DRIVING ABILITY [None]
  - IMPAIRED WORK ABILITY [None]
  - TACHYCARDIA [None]
